FAERS Safety Report 20237173 (Version 1)
Quarter: 2021Q4

REPORT INFORMATION
  Report Type: Spontaneous
  Country: DK (occurrence: AU)
  Receive Date: 20211228
  Receipt Date: 20211228
  Transmission Date: 20220304
  Serious: Yes (Hospitalization, Other)
  Sender: FDA-Public Use
  Company Number: DK-KINGPHARMUSA00001-K200900012

PATIENT
  Age: 76 Year
  Sex: Female

DRUGS (6)
  1. EPIPEN [Suspect]
     Active Substance: EPINEPHRINE
     Dosage: 0.30 MG, SINGLE
     Route: 030
  2. OXPRENOLOL [Concomitant]
     Active Substance: OXPRENOLOL
     Dosage: 20 MG, 1X/DAY
  3. RALOXIFENE [Concomitant]
     Active Substance: RALOXIFENE
     Dosage: 60 MG, 1X/DAY
  4. RANITIDINE [Concomitant]
     Active Substance: RANITIDINE
     Dosage: 150 MG, 2X/DAY
  5. PROMETHAZINE HYDROCHLORIDE [Concomitant]
     Active Substance: PROMETHAZINE HYDROCHLORIDE
     Indication: Angioedema
     Dosage: UNK
  6. HYDROCORTISONE [Concomitant]
     Active Substance: HYDROCORTISONE
     Indication: Angioedema
     Dosage: UNK

REACTIONS (5)
  - Stress cardiomyopathy [Recovered/Resolved]
  - Angina pectoris [Recovered/Resolved]
  - Myocardial necrosis marker increased [Unknown]
  - Cardiomyopathy [Unknown]
  - Electrocardiogram abnormal [Unknown]
